FAERS Safety Report 9238412 (Version 1)
Quarter: 2013Q1

REPORT INFORMATION
  Report Type: Spontaneous
  Country: US (occurrence: None)
  Receive Date: 20121106
  Receipt Date: 20121106
  Transmission Date: 20140127
  Serious: No
  Sender: FDA-Public Use
  Company Number: 100037228

PATIENT
  Sex: Male

DRUGS (1)
  1. DALIRESP [Suspect]
     Dosage: 500 MCG (500 MCG, 1 IN 1 D), ORAL
     Route: 048
     Dates: start: 20120717

REACTIONS (2)
  - Dizziness [None]
  - Confusional state [None]
